FAERS Safety Report 23330203 (Version 1)
Quarter: 2023Q4

REPORT INFORMATION
  Report Type: Spontaneous
  Country: US (occurrence: None)
  Receive Date: 20231222
  Receipt Date: 20231222
  Transmission Date: 20240110
  Serious: Yes (Hospitalization, Disabling, Other)
  Sender: FDA-Public Use
  Company Number: 2023A286214

PATIENT

DRUGS (1)
  1. BREZTRI [Suspect]
     Active Substance: BUDESONIDE\FORMOTEROL\GLYCOPYRROLATE
     Route: 055

REACTIONS (9)
  - COVID-19 [Unknown]
  - Dyspnoea [Unknown]
  - Pulmonary fibrosis [Unknown]
  - Respiratory syncytial virus infection [Unknown]
  - Device malfunction [Unknown]
  - Product dose omission issue [Unknown]
  - Panic reaction [Unknown]
  - Total lung capacity decreased [Unknown]
  - Wrong technique in device usage process [Unknown]
